FAERS Safety Report 16478902 (Version 2)
Quarter: 2019Q3

REPORT INFORMATION
  Report Type: Spontaneous
  Country: CN (occurrence: CN)
  Receive Date: 20190626
  Receipt Date: 20190924
  Transmission Date: 20191004
  Serious: Yes (Hospitalization)
  Sender: FDA-Public Use
  Company Number: CN-ASTRAZENECA-2019SE91088

PATIENT
  Age: 365 Day
  Sex: Female
  Weight: 10 kg

DRUGS (1)
  1. BUDESONIDE. [Suspect]
     Active Substance: BUDESONIDE
     Indication: BRONCHITIS
     Dosage: .5MG, 0.5 DAYS, INHALATION
     Route: 055
     Dates: start: 20190529, end: 20190531

REACTIONS (4)
  - Rash erythematous [Recovering/Resolving]
  - Dermatitis allergic [Recovering/Resolving]
  - Viral rash [Recovering/Resolving]
  - Blister [Recovered/Resolved]

NARRATIVE: CASE EVENT DATE: 20190529
